FAERS Safety Report 11467268 (Version 2)
Quarter: 2015Q3

REPORT INFORMATION
  Report Type: Spontaneous
  Country: KR (occurrence: KR)
  Receive Date: 20150908
  Receipt Date: 20150911
  Transmission Date: 20151125
  Serious: Yes (Hospitalization)
  Sender: FDA-Public Use
  Company Number: KR-AMGEN-KORCT2015091596

PATIENT
  Age: 70 Year
  Sex: Male
  Weight: 72.5 kg

DRUGS (12)
  1. IFOSFAMIDE. [Concomitant]
     Active Substance: IFOSFAMIDE
     Dosage: 6.86 G, UNK
     Route: 042
     Dates: start: 20150702, end: 20150702
  2. ETOPOSIDE. [Concomitant]
     Active Substance: ETOPOSIDE
     Dosage: 137 MG, UNK
     Route: 042
     Dates: start: 20150702, end: 20150702
  3. CARBOPLATIN. [Concomitant]
     Active Substance: CARBOPLATIN
     Dosage: 358 MG, UNK
     Route: 042
     Dates: start: 20150707, end: 20150707
  4. CARBOPLATIN. [Concomitant]
     Active Substance: CARBOPLATIN
     Dosage: 466 MG, UNK
     Route: 042
     Dates: start: 20150818, end: 20150818
  5. G-LASTA [Suspect]
     Active Substance: PEGFILGRASTIM
     Dosage: 6 MG, 1X/3WEEKS
     Route: 058
     Dates: start: 20150704
  6. G-LASTA [Suspect]
     Active Substance: PEGFILGRASTIM
     Dosage: 6 MG, 1X/3WEEKS
     Route: 058
     Dates: start: 20150820
  7. CARBOPLATIN. [Concomitant]
     Active Substance: CARBOPLATIN
     Dosage: 385 MG, UNK
     Route: 042
     Dates: start: 20150702, end: 20150702
  8. IFOSFAMIDE. [Concomitant]
     Active Substance: IFOSFAMIDE
     Dosage: 1 G, UNK
     Route: 042
     Dates: start: 20150607, end: 20150607
  9. IFOSFAMIDE. [Concomitant]
     Active Substance: IFOSFAMIDE
     Dosage: 6.86 G, UNK
     Route: 042
     Dates: start: 20150818, end: 20150818
  10. ETOPOSIDE. [Concomitant]
     Active Substance: ETOPOSIDE
     Dosage: 137 MG, UNK
     Route: 042
     Dates: start: 20150706, end: 20150706
  11. ETOPOSIDE. [Concomitant]
     Active Substance: ETOPOSIDE
     Dosage: 137 MG, UNK
     Route: 042
     Dates: start: 20150818, end: 20150818
  12. G-LASTA [Suspect]
     Active Substance: PEGFILGRASTIM
     Indication: FEBRILE NEUTROPENIA
     Dosage: 6 MG, 1X/3WEEKS
     Route: 058
     Dates: start: 20150609

REACTIONS (1)
  - Neutropenia [Recovered/Resolved]

NARRATIVE: CASE EVENT DATE: 20150827
